FAERS Safety Report 13742579 (Version 2)
Quarter: 2017Q3

REPORT INFORMATION
  Report Type: Spontaneous
  Country: JP (occurrence: JP)
  Receive Date: 20170711
  Receipt Date: 20170725
  Transmission Date: 20171127
  Serious: Yes (Death, Hospitalization, Other)
  Sender: FDA-Public Use
  Company Number: JP-CELGENEUS-JPN-20170700370

PATIENT
  Age: 64 Year
  Sex: Male

DRUGS (1)
  1. REVLIMID [Suspect]
     Active Substance: LENALIDOMIDE
     Indication: PLASMA CELL MYELOMA
     Dosage: 10 MILLIGRAM
     Route: 048
     Dates: start: 20170615, end: 20170628

REACTIONS (5)
  - Plasma cell myeloma [Unknown]
  - White blood cell count decreased [Unknown]
  - Multiple organ dysfunction syndrome [Fatal]
  - Portal venous gas [Unknown]
  - Jaundice [Unknown]

NARRATIVE: CASE EVENT DATE: 20170628
